FAERS Safety Report 25207711 (Version 2)
Quarter: 2025Q2

REPORT INFORMATION
  Report Type: Spontaneous
  Country: US (occurrence: US)
  Receive Date: 20250417
  Receipt Date: 20250623
  Transmission Date: 20250717
  Serious: Yes (Hospitalization, Other)
  Sender: NOVARTIS
  Company Number: US-002147023-NVSC2025US063344

PATIENT
  Sex: Female

DRUGS (1)
  1. KESIMPTA [Suspect]
     Active Substance: OFATUMUMAB
     Indication: Relapsing-remitting multiple sclerosis
     Dosage: 20 MG, QMO
     Route: 058

REACTIONS (6)
  - Multiple sclerosis relapse [Recovering/Resolving]
  - Optic neuritis [Recovering/Resolving]
  - Balance disorder [Recovering/Resolving]
  - Therapeutic response decreased [Recovering/Resolving]
  - Visual impairment [Recovering/Resolving]
  - Drug ineffective [Not Recovered/Not Resolved]
